FAERS Safety Report 9473011 (Version 3)
Quarter: 2013Q4

REPORT INFORMATION
  Report Type: Spontaneous
  Country: US (occurrence: US)
  Receive Date: 20130823
  Receipt Date: 20131025
  Transmission Date: 20140711
  Serious: Yes (Disabling, Other)
  Sender: FDA-Public Use
  Company Number: US-JNJFOC-20130803962

PATIENT
  Age: 19 Year
  Sex: Female
  Weight: 106.48 kg

DRUGS (5)
  1. RISPERDAL CONSTA [Suspect]
     Indication: BIPOLAR I DISORDER
     Route: 030
     Dates: start: 20120717
  2. RISPERDAL CONSTA [Suspect]
     Indication: SCHIZOPHRENIA
     Route: 030
     Dates: start: 20120717
  3. LITHIUM [Concomitant]
     Indication: SCHIZOPHRENIA
     Dosage: 2 CAPSULES DAILY
     Route: 048
     Dates: start: 2011
  4. CITALOPRAM [Concomitant]
     Indication: DEPRESSION
     Route: 065
     Dates: start: 2011
  5. IMITREX [Concomitant]
     Indication: MIGRAINE
     Dosage: PRN
     Route: 065
     Dates: start: 20120717

REACTIONS (4)
  - Adverse event [Recovering/Resolving]
  - Drug dose omission [Unknown]
  - Needle issue [Unknown]
  - Syringe issue [Unknown]
